APPROVED DRUG PRODUCT: FLUORESCEIN SODIUM
Active Ingredient: FLUORESCEIN SODIUM
Strength: EQ 500MG BASE/2ML (EQ 250MG BASE/ML)
Dosage Form/Route: INJECTABLE;INTRAVENOUS
Application: A215709 | Product #002
Applicant: NEXUS PHARMACEUTICALS LLC
Approved: Sep 25, 2023 | RLD: No | RS: Yes | Type: RX